FAERS Safety Report 10964305 (Version 1)
Quarter: 2015Q1

REPORT INFORMATION
  Report Type: Spontaneous
  Country: US (occurrence: None)
  Receive Date: 20150226
  Receipt Date: 20150226
  Transmission Date: 20150721
  Serious: Yes (Other)
  Sender: FDA-Public Use
  Company Number: TPA2012A03731

PATIENT
  Age: 79 Year
  Sex: Male
  Weight: 117.94 kg

DRUGS (8)
  1. ACTOS [Suspect]
     Active Substance: PIOGLITAZONE HYDROCHLORIDE
     Indication: TYPE 2 DIABETES MELLITUS
     Dates: start: 20050622
  2. IRBESARTAN. [Concomitant]
     Active Substance: IRBESARTAN
  3. GLUCOPHAGE (METFORMINE HYDROCHLORIDE) [Concomitant]
  4. GLUCOTROL (GLIIZIDE) [Concomitant]
  5. JANUVIA [Concomitant]
     Active Substance: SITAGLIPTIN PHOSPHATE
  6. AMLODIPINE [Concomitant]
     Active Substance: AMLODIPINE BESYLATE
  7. MORNIFLUMATE [Concomitant]
     Active Substance: MORNIFLUMATE
  8. HUMULIN NOS [Concomitant]
     Active Substance: INSULIN HUMAN

REACTIONS (1)
  - Bladder cancer [None]

NARRATIVE: CASE EVENT DATE: 20100505
